FAERS Safety Report 10656853 (Version 1)
Quarter: 2014Q4

REPORT INFORMATION
  Report Type: Spontaneous
  Country: US (occurrence: US)
  Receive Date: 20141217
  Receipt Date: 20141217
  Transmission Date: 20150529
  Serious: No
  Sender: FDA-Public Use
  Company Number: US-009507513-1412USA007621

PATIENT

DRUGS (2)
  1. TAMBOCOR [Suspect]
     Active Substance: FLECAINIDE ACETATE
  2. TEMODAR [Suspect]
     Active Substance: TEMOZOLOMIDE
     Dosage: UNK
     Route: 048

REACTIONS (2)
  - Product name confusion [Unknown]
  - Drug dispensing error [Unknown]
